FAERS Safety Report 25031842 (Version 1)
Quarter: 2025Q1

REPORT INFORMATION
  Report Type: Report from Study
  Country: US (occurrence: US)
  Receive Date: 20250303
  Receipt Date: 20250303
  Transmission Date: 20250408
  Serious: Yes (Hospitalization)
  Sender: EISAI
  Company Number: US-Eisai-EC-2025-185067

PATIENT
  Age: 72 Year
  Sex: Female

DRUGS (4)
  1. LENVIMA [Suspect]
     Active Substance: LENVATINIB
     Indication: Endometrial cancer
     Dates: start: 20230410, end: 202402
  2. LENVIMA [Suspect]
     Active Substance: LENVATINIB
     Dates: start: 2024, end: 202405
  3. LENVIMA [Suspect]
     Active Substance: LENVATINIB
     Dates: start: 2024
  4. LENVIMA [Suspect]
     Active Substance: LENVATINIB

REACTIONS (3)
  - Loss of consciousness [Unknown]
  - Dehydration [Unknown]
  - Weight decreased [Unknown]

NARRATIVE: CASE EVENT DATE: 20241201
